FAERS Safety Report 4944074-8 (Version None)
Quarter: 2006Q1

REPORT INFORMATION
  Report Type: 
  Country: None (occurrence: None)
  Receive Date: 20060310
  Receipt Date: 20060227
  Transmission Date: 20060701
  Serious: Yes (Hospitalization)
  Sender: FDA-Public Use
  Company Number: A-US2005-11294

PATIENT
  Age: 73 Year
  Sex: Female
  Weight: 103 kg

DRUGS (11)
  1. TRACLEER [Suspect]
     Indication: PULMONARY HYPERTENSION
     Dosage: 125 MG, BID, ORAL
     Route: 048
     Dates: start: 20051101
  2. AGRYLIN [Concomitant]
  3. ALLOPURINOL [Concomitant]
  4. COMBIVENT [Concomitant]
  5. FOLIC ACID [Concomitant]
  6. CHONDROITIN SULFATE (CHONDROITIN SULFATE) [Concomitant]
  7. GLUCOSAMINE (GLUCOSAMINE) [Concomitant]
  8. FUROSEMIDE [Concomitant]
  9. POTASSIUM (POTASSIUM) [Concomitant]
  10. PREDNISONE TAB [Concomitant]
  11. SILDENAFIL CITRATE [Concomitant]

REACTIONS (8)
  - CARDIAC FAILURE CONGESTIVE [None]
  - CARDIOMEGALY [None]
  - CONSTIPATION [None]
  - FLUID OVERLOAD [None]
  - GASTROENTERITIS VIRAL [None]
  - LUNG INFILTRATION [None]
  - OEDEMA [None]
  - WEIGHT INCREASED [None]
